FAERS Safety Report 8232399-2 (Version None)
Quarter: 2012Q1

REPORT INFORMATION
  Report Type: 
  Country: None (occurrence: None)
  Receive Date: 20120323
  Receipt Date: 20120319
  Transmission Date: 20120608
  Serious: Yes (Life-Threatening)
  Sender: FDA-Public Use
  Company Number: JP-GLAXOSMITHKLINE-B0790641A

PATIENT
  Age: 70 Year
  Sex: Male
  Weight: 65 kg

DRUGS (3)
  1. CEFUROXIME [Suspect]
     Indication: TOOTH ABSCESS
     Dosage: 250MG PER DAY
     Route: 048
     Dates: start: 20110506, end: 20110506
  2. ORACEF [Concomitant]
  3. LEFTOSE [Concomitant]
     Indication: TOOTH ABSCESS
     Dosage: 50MG PER DAY
     Route: 048
     Dates: start: 20110506, end: 20110506

REACTIONS (6)
  - ANAPHYLACTIC SHOCK [None]
  - DYSPNOEA [None]
  - DEPRESSED LEVEL OF CONSCIOUSNESS [None]
  - BLOOD PRESSURE INCREASED [None]
  - ERYTHEMA [None]
  - HEART RATE DECREASED [None]
